FAERS Safety Report 10540284 (Version 1)
Quarter: 2014Q4

REPORT INFORMATION
  Report Type: Spontaneous
  Country: US (occurrence: None)
  Receive Date: 20141023
  Receipt Date: 20141023
  Transmission Date: 20150529
  Serious: Yes (Hospitalization)
  Sender: FDA-Public Use
  Company Number: None

PATIENT
  Age: 79 Year
  Sex: Male
  Weight: 59.9 kg

DRUGS (15)
  1. CYANOCOBOLAMIN [Concomitant]
  2. DILTIAZEM [Concomitant]
     Active Substance: DILTIAZEM
  3. FERROUS SULFATE [Concomitant]
     Active Substance: FERROUS SULFATE\FERROUS SULFATE, DRIED
  4. MONTELUKAST [Concomitant]
     Active Substance: MONTELUKAST SODIUM
  5. RIVASTIGMINE [Concomitant]
     Active Substance: RIVASTIGMINE
  6. CITALOPRAM [Concomitant]
     Active Substance: CITALOPRAM HYDROBROMIDE
  7. NITROSTAT 0.4 MG SL PRN [Concomitant]
  8. DEXLANSOPRAZOLE [Concomitant]
     Active Substance: DEXLANSOPRAZOLE
  9. FUROSEMIDE. [Concomitant]
     Active Substance: FUROSEMIDE
  10. NAMENDA [Concomitant]
     Active Substance: MEMANTINE HYDROCHLORIDE
  11. POTASSIUM CHLORIDE. [Concomitant]
     Active Substance: POTASSIUM CHLORIDE
  12. RIVAROXABAN [Suspect]
     Active Substance: RIVAROXABAN
     Indication: ATRIAL FIBRILLATION
     Route: 048
     Dates: start: 201402
  13. CHOLECALCIFEROL [Concomitant]
     Active Substance: CHOLECALCIFEROL
  14. GABAPENTIN. [Concomitant]
     Active Substance: GABAPENTIN
  15. TRAZODONE [Concomitant]
     Active Substance: TRAZODONE HYDROCHLORIDE

REACTIONS (4)
  - Gastric ulcer [None]
  - Gastrointestinal haemorrhage [None]
  - Melaena [None]
  - Hypotension [None]

NARRATIVE: CASE EVENT DATE: 19140903
